FAERS Safety Report 11772579 (Version 1)
Quarter: 2015Q4

REPORT INFORMATION
  Report Type: Spontaneous
  Country: SE (occurrence: SE)
  Receive Date: 20151124
  Receipt Date: 20151124
  Transmission Date: 20160304
  Serious: Yes (Hospitalization)
  Sender: FDA-Public Use
  Company Number: SE-PFIZER INC-2015397671

PATIENT
  Age: 67 Year
  Sex: Male

DRUGS (2)
  1. XANOR [Suspect]
     Active Substance: ALPRAZOLAM
     Dosage: UNK
  2. OXYCODONE [Suspect]
     Active Substance: OXYCODONE
     Dosage: UNK
     Route: 041

REACTIONS (4)
  - Constipation [Recovering/Resolving]
  - Decubitus ulcer [Unknown]
  - Toxicity to various agents [Recovering/Resolving]
  - Pyrexia [Unknown]

NARRATIVE: CASE EVENT DATE: 20151020
